FAERS Safety Report 18315198 (Version 7)
Quarter: 2022Q1

REPORT INFORMATION
  Report Type: Report from Study
  Country: US (occurrence: US)
  Receive Date: 20200926
  Receipt Date: 20220317
  Transmission Date: 20220423
  Serious: Yes (Hospitalization, Other)
  Sender: FDA-Public Use
  Company Number: NVSC2020US262099

PATIENT
  Age: 64 Year
  Sex: Female

DRUGS (5)
  1. MAYZENT [Suspect]
     Active Substance: SIPONIMOD
     Indication: Multiple sclerosis
     Dosage: 2 MG, QD
     Route: 048
     Dates: start: 20200924, end: 20220225
  2. MAYZENT [Suspect]
     Active Substance: SIPONIMOD
     Dosage: 2 MG, QD
     Route: 048
  3. MAYZENT [Suspect]
     Active Substance: SIPONIMOD
     Dosage: 2 MG
     Route: 048
  4. MAYZENT [Suspect]
     Active Substance: SIPONIMOD
     Dosage: 2 MG
     Route: 048
  5. MAYZENT [Suspect]
     Active Substance: SIPONIMOD
     Dosage: 2 MG, Q2H
     Route: 048

REACTIONS (9)
  - Cerebrovascular accident [Recovered/Resolved]
  - Asthenia [Unknown]
  - Confusional state [Unknown]
  - Dysarthria [Unknown]
  - Headache [Unknown]
  - Fall [Recovered/Resolved]
  - Cataract [Unknown]
  - Headache [Recovered/Resolved]
  - Back pain [Unknown]

NARRATIVE: CASE EVENT DATE: 20200924
